FAERS Safety Report 22018973 (Version 1)
Quarter: 2023Q1

REPORT INFORMATION
  Report Type: Spontaneous
  Country: US (occurrence: None)
  Receive Date: 20230222
  Receipt Date: 20230222
  Transmission Date: 20230418
  Serious: Yes (Hospitalization)
  Sender: FDA-Public Use
  Company Number: US-ROCHE-3288956

PATIENT
  Age: 36 Year
  Sex: Male

DRUGS (2)
  1. OCREVUS [Suspect]
     Active Substance: OCRELIZUMAB
     Indication: Multiple sclerosis
     Route: 065
     Dates: start: 20220812
  2. OCREVUS [Suspect]
     Active Substance: OCRELIZUMAB
     Route: 065
     Dates: start: 20220826

REACTIONS (7)
  - Oral herpes [Unknown]
  - Pain in jaw [Unknown]
  - Chest pain [Unknown]
  - Troponin increased [Unknown]
  - Headache [Unknown]
  - Muscle twitching [Unknown]
  - Pyrexia [Unknown]

NARRATIVE: CASE EVENT DATE: 20220812
